FAERS Safety Report 25273305 (Version 1)
Quarter: 2025Q2

REPORT INFORMATION
  Report Type: Spontaneous
  Country: US (occurrence: US)
  Receive Date: 20250506
  Receipt Date: 20250506
  Transmission Date: 20250716
  Serious: No
  Sender: AMNEAL
  Company Number: US-AMNEAL PHARMACEUTICALS-2024-AMRX-03394

PATIENT
  Sex: Male
  Weight: 9.977 kg

DRUGS (5)
  1. VIGABATRIN [Suspect]
     Active Substance: VIGABATRIN
     Indication: Epilepsy
     Dosage: 500 MG PACKETS, 12.5ML 2 /DAY
     Route: 048
     Dates: start: 20240809
  2. SABRIL [Concomitant]
     Active Substance: VIGABATRIN
     Indication: Product used for unknown indication
     Route: 065
  3. IBUPROFEN [Concomitant]
     Active Substance: IBUPROFEN
     Indication: Product used for unknown indication
     Route: 048
  4. ACETAMINOPHEN [Concomitant]
     Active Substance: ACETAMINOPHEN
     Indication: Product used for unknown indication
     Route: 048
  5. VITAMIN D NOS [Concomitant]
     Active Substance: CHOLECALCIFEROL\ERGOCALCIFEROL
     Indication: Product used for unknown indication
     Route: 048

REACTIONS (2)
  - Therapeutic product effect incomplete [Unknown]
  - No adverse event [Unknown]
